FAERS Safety Report 24315852 (Version 1)
Quarter: 2024Q3

REPORT INFORMATION
  Report Type: Spontaneous
  Country: AU (occurrence: AU)
  Receive Date: 20240913
  Receipt Date: 20240913
  Transmission Date: 20241017
  Serious: Yes (Hospitalization, Other)
  Sender: RANBAXY
  Company Number: AU-SUN PHARMACEUTICAL INDUSTRIES LTD-2024R1-467554

PATIENT
  Age: 79 Year
  Sex: Female

DRUGS (1)
  1. ROSUVASTATIN [Suspect]
     Active Substance: ROSUVASTATIN\ROSUVASTATIN CALCIUM
     Indication: Product used for unknown indication
     Dosage: 40 MILLIGRAM
     Route: 065

REACTIONS (6)
  - Rhabdomyolysis [Not Recovered/Not Resolved]
  - Acute kidney injury [Unknown]
  - Asthenia [Unknown]
  - Blood creatine phosphokinase increased [Unknown]
  - Dehydration [Unknown]
  - Lethargy [Unknown]

NARRATIVE: CASE EVENT DATE: 20240713
